FAERS Safety Report 4664000-9 (Version None)
Quarter: 2005Q2

REPORT INFORMATION
  Report Type: 
  Country: None (occurrence: None)
  Receive Date: 20050516
  Receipt Date: 20050516
  Transmission Date: 20051028
  Serious: Yes (Other)
  Sender: FDA-Public Use
  Company Number: None

PATIENT
  Sex: Female
  Weight: 60.2 kg

DRUGS (8)
  1. SIMVASTATIN [Suspect]
     Indication: HYPERLIPIDAEMIA
     Dosage: 20MG PO
     Route: 048
     Dates: start: 20041117, end: 20050105
  2. METFORMIN [Concomitant]
  3. LOSARTAN POTASSIUM [Concomitant]
  4. ASPIRIN [Concomitant]
  5. CALCIUM GLUCONATE [Concomitant]
  6. IBUPROFEN [Concomitant]
  7. LEVOTHYROXINE SODIUM [Concomitant]
  8. GLYBURIDE [Concomitant]

REACTIONS (3)
  - ALANINE AMINOTRANSFERASE INCREASED [None]
  - ASPARTATE AMINOTRANSFERASE INCREASED [None]
  - NEUTROPHIL COUNT ABNORMAL [None]
